FAERS Safety Report 14338064 (Version 2)
Quarter: 2018Q1

REPORT INFORMATION
  Report Type: Spontaneous
  Country: FR (occurrence: FR)
  Receive Date: 20171229
  Receipt Date: 20180329
  Transmission Date: 20180509
  Serious: Yes (Other)
  Sender: FDA-Public Use
  Company Number: FR-MYLANLABS-2017M1082706

PATIENT
  Age: 3 Year
  Sex: Female

DRUGS (22)
  1. DEXAMETHASONE. [Suspect]
     Active Substance: DEXAMETHASONE
     Indication: ACUTE LYMPHOCYTIC LEUKAEMIA
     Dosage: 4 MG, QD
     Route: 048
     Dates: start: 20170802, end: 20171001
  2. VINCRISTINE [Suspect]
     Active Substance: VINCRISTINE
     Dosage: 0.93 MG, 1X/DAY:QD
     Route: 042
     Dates: start: 20170906, end: 20170906
  3. DEXAMETHASONE. [Suspect]
     Active Substance: DEXAMETHASONE
     Dosage: 4 MG, 1X/DAY:QD
     Route: 048
     Dates: start: 20170802, end: 20171001
  4. METHOTREXATE. [Suspect]
     Active Substance: METHOTREXATE
     Dosage: 12 MG, 1X/DAY:QD
     Route: 037
     Dates: start: 20170803, end: 20170928
  5. METHOTREXATE. [Suspect]
     Active Substance: METHOTREXATE
     Dosage: 15 MG/WEEK
     Route: 048
     Dates: start: 20170810, end: 20170907
  6. 6-MERCAPTOPURINE MONOHYDRATE [Suspect]
     Active Substance: MERCAPTOPURINE
     Dosage: 32 MG, UNK
     Route: 048
     Dates: start: 20170830, end: 20170830
  7. PEGASPARGASE [Suspect]
     Active Substance: PEGASPARGASE
     Dosage: 1575 IU, 1X/DAY:QD
     Route: 042
     Dates: start: 20170809, end: 20170809
  8. 6-MERCAPTOPURINE MONOHYDRATE [Suspect]
     Active Substance: MERCAPTOPURINE
     Dosage: 32 MG, 1X/DAY:QD
     Route: 048
     Dates: start: 20170802, end: 20170919
  9. VINCRISTINE [Suspect]
     Active Substance: VINCRISTINE
     Dosage: 0.95 MG, 1X/DAY:QD
     Route: 042
     Dates: start: 20170830, end: 20170830
  10. VINCRISTINE [Suspect]
     Active Substance: VINCRISTINE
     Dosage: 0.9 MG, 1X/DAY:QD
     Dates: start: 20170809, end: 20170809
  11. DEXAMETHASONE. [Suspect]
     Active Substance: DEXAMETHASONE
     Dosage: 4 MG, UNK
     Route: 048
     Dates: start: 20170903, end: 20170903
  12. 6-MERCAPTOPURINE MONOHYDRATE [Suspect]
     Active Substance: MERCAPTOPURINE
     Indication: ACUTE LYMPHOCYTIC LEUKAEMIA
     Dosage: 32 MG, 1X/DAY:QD
     Route: 048
     Dates: start: 20170802, end: 20170919
  13. PEGASPARGASE [Suspect]
     Active Substance: PEGASPARGASE
     Indication: ACUTE LYMPHOCYTIC LEUKAEMIA
     Dosage: 1575 IU, QD
     Route: 048
     Dates: start: 20170809, end: 20171004
  14. METHOTREXATE. [Suspect]
     Active Substance: METHOTREXATE
     Indication: ACUTE LYMPHOCYTIC LEUKAEMIA
     Dosage: 12 MG, 1X/DAY:QD
     Route: 037
     Dates: start: 20170803, end: 20170928
  15. VINCRISTINE [Suspect]
     Active Substance: VINCRISTINE
     Dosage: 0.9 MG, 1X/DAY:QD
     Route: 042
     Dates: start: 20170802, end: 20170802
  16. PEGASPARGASE [Suspect]
     Active Substance: PEGASPARGASE
     Dosage: 1575 IU, 1X/DAY:QD
     Route: 042
     Dates: start: 20170906, end: 20170906
  17. SULFAMETHOXAZOLE AND TRIMETHOPRIM [Concomitant]
     Active Substance: SULFAMETHOXAZOLE\TRIMETHOPRIM
     Indication: ANTIFUNGAL PROPHYLAXIS
  18. VINCRISTINE [Suspect]
     Active Substance: VINCRISTINE
     Indication: ACUTE LYMPHOCYTIC LEUKAEMIA
     Dosage: 0.9 MG, 1X/DAY:QD
     Route: 048
     Dates: start: 20170802, end: 20171004
  19. VINCRISTINE [Suspect]
     Active Substance: VINCRISTINE
     Dosage: 0.9 MG, 1X/DAY:QD
     Route: 042
     Dates: start: 20171004, end: 20171004
  20. PEGASPARGASE [Suspect]
     Active Substance: PEGASPARGASE
     Dosage: 1575 IU, 1X/DAY:QD
     Route: 042
     Dates: start: 20171004, end: 20171004
  21. DUPHALAC [Concomitant]
     Active Substance: LACTULOSE
     Indication: CONSTIPATION
  22. METHOTREXATE. [Suspect]
     Active Substance: METHOTREXATE
     Dosage: 12 MG, 1X/DAY:QD
     Route: 037
     Dates: start: 20170831, end: 20170831

REACTIONS (1)
  - Hypertriglyceridaemia [Recovered/Resolved]

NARRATIVE: CASE EVENT DATE: 20170913
